FAERS Safety Report 5267598-5 (Version None)
Quarter: 2007Q1

REPORT INFORMATION
  Report Type: 
  Country: None (occurrence: None)
  Receive Date: 20070316
  Receipt Date: 20070315
  Transmission Date: 20070707
  Serious: Yes (Hospitalization)
  Sender: FDA-Public Use
  Company Number: US-BRISTOL-MYERS SQUIBB COMPANY-13674080

PATIENT
  Age: 43 Year
  Sex: Female

DRUGS (3)
  1. ORENCIA [Suspect]
     Indication: RHEUMATOID ARTHRITIS
     Route: 042
     Dates: start: 20070119
  2. METHOTREXATE [Concomitant]
     Route: 058
  3. PREDNISONE [Concomitant]
     Route: 048

REACTIONS (2)
  - CHEST PAIN [None]
  - NECK PAIN [None]
